FAERS Safety Report 16332912 (Version 2)
Quarter: 2020Q2

REPORT INFORMATION
  Report Type: Other
  Country: CA (occurrence: CA)
  Receive Date: 20190520
  Receipt Date: 20200612
  Transmission Date: 20200713
  Serious: Yes (Hospitalization, Other)
  Sender: FDA-Public Use
  Company Number: CA-APOTEX-2019AP013916

PATIENT
  Age: 47 Year
  Sex: Male

DRUGS (9)
  1. OCRELIZUMAB. [Suspect]
     Active Substance: OCRELIZUMAB
     Dosage: UNK
     Route: 042
  2. DIPHENHYDRAMINE. [Suspect]
     Active Substance: DIPHENHYDRAMINE
     Indication: PREMEDICATION
     Dosage: UNK
     Route: 065
  3. OCRELIZUMAB. [Suspect]
     Active Substance: OCRELIZUMAB
     Indication: RELAPSING-REMITTING MULTIPLE SCLEROSIS
     Dosage: 300 MG, 2 EVENRY 14 DAYS
     Route: 042
  4. OCREVUS [Suspect]
     Active Substance: OCRELIZUMAB
     Dosage: 300 MG, 2 EVENRY 14 DAYS
     Route: 042
  5. NORMAL SALINE [Concomitant]
     Active Substance: SODIUM CHLORIDE
     Indication: PRODUCT USED FOR UNKNOWN INDICATION
     Dosage: 250 ML, UNK
     Route: 042
  6. CEFPROZIL. [Suspect]
     Active Substance: CEFPROZIL
     Indication: BRONCHITIS
     Dosage: UNK
     Route: 065
  7. OCREVUS [Suspect]
     Active Substance: OCRELIZUMAB
     Indication: RELAPSING-REMITTING MULTIPLE SCLEROSIS
     Dosage: UNK
     Route: 042
  8. RAMIPRIL. [Concomitant]
     Active Substance: RAMIPRIL
     Indication: PRODUCT USED FOR UNKNOWN INDICATION
     Dosage: 10 MG, UNK
     Route: 065
  9. DOXYCYCLINE. [Suspect]
     Active Substance: DOXYCYCLINE
     Indication: BRONCHITIS
     Dosage: 100 MG, UNK
     Route: 048

REACTIONS (17)
  - Tooth disorder [Not Recovered/Not Resolved]
  - Oropharyngeal pain [Not Recovered/Not Resolved]
  - Musculoskeletal stiffness [Not Recovered/Not Resolved]
  - White blood cell count decreased [Not Recovered/Not Resolved]
  - Cough [Not Recovered/Not Resolved]
  - Influenza [Not Recovered/Not Resolved]
  - Dry throat [Not Recovered/Not Resolved]
  - Mobility decreased [Not Recovered/Not Resolved]
  - White blood cell count [Not Recovered/Not Resolved]
  - Fatigue [Not Recovered/Not Resolved]
  - Product administration error [Not Recovered/Not Resolved]
  - Memory impairment [Not Recovered/Not Resolved]
  - Drug hypersensitivity [Not Recovered/Not Resolved]
  - Magnetic resonance imaging abnormal [Not Recovered/Not Resolved]
  - Mood swings [Not Recovered/Not Resolved]
  - Heart rate increased [Not Recovered/Not Resolved]
  - Nasopharyngitis [Not Recovered/Not Resolved]
